FAERS Safety Report 6690791-1 (Version None)
Quarter: 2010Q2

REPORT INFORMATION
  Report Type: 
  Country: None (occurrence: None)
  Receive Date: 20100421
  Receipt Date: 20100413
  Transmission Date: 20101027
  Serious: Yes (Death, Hospitalization, Other)
  Sender: FDA-Public Use
  Company Number: JP-ELI_LILLY_AND_COMPANY-JP201001003763

PATIENT
  Sex: Male
  Weight: 72 kg

DRUGS (13)
  1. ALIMTA [Suspect]
     Indication: LUNG ADENOCARCINOMA RECURRENT
     Dosage: 500 MG/M2, OTHER
     Route: 042
     Dates: start: 20100108, end: 20100108
  2. PARAPLATIN [Concomitant]
     Indication: LUNG ADENOCARCINOMA RECURRENT
     Dosage: 700 MG, OTHER
     Route: 042
     Dates: start: 20100108, end: 20100108
  3. AVASTIN [Concomitant]
     Indication: LUNG ADENOCARCINOMA RECURRENT
     Dosage: 1050 MG, OTHER
     Route: 042
     Dates: start: 20100108, end: 20100108
  4. PANVITAN [Concomitant]
     Dosage: 1 G, DAILY (1/D)
     Route: 048
     Dates: start: 20100104, end: 20100126
  5. HYDROXOCOBALAMIN ACETATE [Concomitant]
     Dosage: 1 MG, OTHER
     Route: 030
     Dates: start: 20100104
  6. SOLU-MEDROL [Concomitant]
     Indication: RESPIRATORY FAILURE
     Dosage: UNK, UNK
     Route: 042
     Dates: start: 20091217, end: 20100107
  7. SOLU-MEDROL [Concomitant]
     Dosage: 40 MG, DAILY (1/D)
     Route: 042
     Dates: start: 20100108, end: 20100114
  8. SOLU-MEDROL [Concomitant]
     Dosage: 1000 MG, DAILY (1/D)
     Route: 042
     Dates: start: 20100115, end: 20100123
  9. ELASPOL [Concomitant]
     Indication: RESPIRATORY FAILURE
     Dosage: 400 MG, DAILY (1/D)
     Route: 042
     Dates: start: 20100108, end: 20100117
  10. FRAGMIN [Concomitant]
     Indication: RESPIRATORY FAILURE
     Dosage: 5000 U, DAILY (1/D)
     Route: 042
     Dates: start: 20100108, end: 20100127
  11. MAXIPIME [Concomitant]
     Indication: INFECTION
     Dosage: 2000 MG, DAILY (1/D)
     Route: 042
     Dates: start: 20100109, end: 20100125
  12. FUNGUARD [Concomitant]
     Indication: INFECTION
     Dosage: 150 MG, DAILY (1/D)
     Route: 042
     Dates: start: 20100112, end: 20100125
  13. OXYGEN [Concomitant]
     Dosage: FIO2 55%
     Route: 055
     Dates: start: 20100108, end: 20100127

REACTIONS (5)
  - ANAEMIA [None]
  - DISSEMINATED INTRAVASCULAR COAGULATION [None]
  - INTERSTITIAL LUNG DISEASE [None]
  - MALIGNANT NEOPLASM PROGRESSION [None]
  - WHITE BLOOD CELL COUNT DECREASED [None]
